FAERS Safety Report 5598765-9 (Version None)
Quarter: 2008Q1

REPORT INFORMATION
  Report Type: 
  Country: None (occurrence: None)
  Receive Date: 20080122
  Receipt Date: 20080115
  Transmission Date: 20080703
  Serious: Yes (Hospitalization)
  Sender: FDA-Public Use
  Company Number: ES-RANBAXY-2007RR-11443

PATIENT

DRUGS (2)
  1. TOPIRABAX 100MG [Suspect]
  2. RISPERIDONE [Concomitant]

REACTIONS (1)
  - HEAT STROKE [None]
